FAERS Safety Report 22036430 (Version 1)
Quarter: 2023Q1

REPORT INFORMATION
  Report Type: Spontaneous
  Country: PT (occurrence: PT)
  Receive Date: 20230225
  Receipt Date: 20230225
  Transmission Date: 20230418
  Serious: Yes (Other)
  Sender: FDA-Public Use
  Company Number: PT-AGUETTANT-2023000124

PATIENT
  Age: 26 Year
  Sex: Female

DRUGS (9)
  1. BUPIVACAINE [Suspect]
     Active Substance: BUPIVACAINE
     Indication: Caesarean section
     Dosage: 8 MILLIGRAM
     Route: 065
  2. ATROPINE [Suspect]
     Active Substance: ATROPINE
     Indication: Hypotension
     Dosage: 0.5 MILLIGRAM
     Route: 065
  3. ATROPINE [Suspect]
     Active Substance: ATROPINE
     Indication: Bradycardia
  4. EPHEDRINE [Suspect]
     Active Substance: EPHEDRINE
     Indication: Headache
     Dosage: 10 MILLIGRAM
     Route: 065
  5. EPHEDRINE [Suspect]
     Active Substance: EPHEDRINE
     Indication: Hypotension
  6. EPHEDRINE [Suspect]
     Active Substance: EPHEDRINE
     Indication: Nausea
  7. FUROSEMIDE [Concomitant]
     Active Substance: FUROSEMIDE
     Indication: Product used for unknown indication
     Dosage: 40 MILLIGRAM
     Route: 042
  8. PHENYLEPHRINE [Suspect]
     Active Substance: PHENYLEPHRINE HYDROCHLORIDE
     Indication: Product used for unknown indication
     Dosage: 2 MILLIGRAMS, AMPOULE OF 10MG/ML OF PHENYLEPHRINE, DILUTION DONE AND THE SYRINGE INJJECTED CONTAININ
     Route: 065
  9. SUFENTANIL [Suspect]
     Active Substance: SUFENTANIL
     Indication: Caesarean section
     Dosage: 2.5 MICROGRAM
     Route: 065

REACTIONS (14)
  - Bradycardia [Unknown]
  - Hypoxia [Unknown]
  - Ventricular hypokinesia [Unknown]
  - Cough [Unknown]
  - Crepitations [Unknown]
  - Headache [Unknown]
  - Hypertension [Unknown]
  - Hypotension [Unknown]
  - Lung infiltration [Recovered/Resolved]
  - Normochromic normocytic anaemia [Unknown]
  - Pleural effusion [Recovered/Resolved]
  - Sinus tachycardia [Unknown]
  - Nausea [Unknown]
  - Drug ineffective [Unknown]
